FAERS Safety Report 25390275 (Version 1)
Quarter: 2025Q2

REPORT INFORMATION
  Report Type: Spontaneous
  Country: CN (occurrence: CN)
  Receive Date: 20250603
  Receipt Date: 20250603
  Transmission Date: 20250716
  Serious: Yes (Other)
  Sender: PFIZER
  Company Number: CN-PFIZER INC-PV202500064980

PATIENT
  Age: 14 Year
  Sex: Male
  Weight: 53 kg

DRUGS (4)
  1. METHOTREXATE SODIUM [Suspect]
     Active Substance: METHOTREXATE SODIUM
     Indication: Acute lymphocytic leukaemia
     Dosage: 35.5 ML, 2X/DAY
     Route: 041
     Dates: start: 20250516, end: 20250516
  2. METHOTREXATE SODIUM [Suspect]
     Active Substance: METHOTREXATE SODIUM
     Dosage: 8 ML, 1X/DAY
     Route: 041
     Dates: start: 20250516, end: 20250516
  3. SODIUM CHLORIDE [Concomitant]
     Active Substance: SODIUM CHLORIDE
     Indication: Vehicle solution use
     Dosage: 250 ML, 2X/DAY
     Route: 041
     Dates: start: 20250516, end: 20250516
  4. SODIUM CHLORIDE [Concomitant]
     Active Substance: SODIUM CHLORIDE
     Dosage: 50 ML, 1X/DAY
     Route: 041
     Dates: start: 20250516, end: 20250516

REACTIONS (3)
  - Overdose [Unknown]
  - Vomiting [Recovering/Resolving]
  - Drug level increased [Recovered/Resolved]

NARRATIVE: CASE EVENT DATE: 20250516
